FAERS Safety Report 23828253 (Version 1)
Quarter: 2024Q2

REPORT INFORMATION
  Report Type: Report from Study
  Country: US (occurrence: US)
  Receive Date: 20240508
  Receipt Date: 20240508
  Transmission Date: 20240716
  Serious: No
  Sender: FDA-Public Use
  Company Number: US-SANDOZ-SDZ2024US045970

PATIENT
  Sex: Male

DRUGS (2)
  1. OMNITROPE [Suspect]
     Active Substance: SOMATROPIN
     Indication: Short stature
     Dosage: 10 MG, QD, 2 DOSE EVERY N/A N/A
     Route: 030
     Dates: start: 20240409
  2. OMNITROPE [Suspect]
     Active Substance: SOMATROPIN
     Indication: Short stature
     Dosage: 10 MG, QD, 2 DOSE EVERY N/A N/A
     Route: 030
     Dates: start: 20240409

REACTIONS (2)
  - Drug ineffective [Unknown]
  - Device physical property issue [Unknown]
